FAERS Safety Report 17305914 (Version 1)
Quarter: 2020Q1

REPORT INFORMATION
  Report Type: Spontaneous
  Country: PL (occurrence: PL)
  Receive Date: 20200123
  Receipt Date: 20200123
  Transmission Date: 20200409
  Serious: Yes (Other)
  Sender: FDA-Public Use
  Company Number: PL-TEVA-2020-PL-1171168

PATIENT
  Age: 39 Year
  Sex: Female

DRUGS (7)
  1. NATULAN [Suspect]
     Active Substance: PROCARBAZINE HYDROCHLORIDE
     Indication: HODGKIN^S DISEASE
     Dosage: AS A PART OF MOPP/ABV REGIMEN.
     Route: 065
     Dates: start: 19951221, end: 19960215
  2. ENCORTON [Suspect]
     Active Substance: PREDNISONE
     Indication: HODGKIN^S DISEASE
     Dosage: AS A PART OF MOPP/ABV REGIMEN.
     Route: 065
     Dates: start: 19951221, end: 19960215
  3. VINBLASTINE [Suspect]
     Active Substance: VINBLASTINE
     Indication: HODGKIN^S DISEASE
     Dosage: AS A PART OF MOPP/ABV REGIMEN.
     Route: 065
     Dates: start: 19951221, end: 19960215
  4. VINCRISTINE [Suspect]
     Active Substance: VINCRISTINE
     Indication: HODGKIN^S DISEASE
     Dosage: AS A PART OF MOPP/ABV REGIMEN.
     Route: 065
     Dates: start: 19951221, end: 19960215
  5. NITROGRANULOGEN [Suspect]
     Active Substance: MECHLORETHAMINE HYDROCHLORIDE
     Indication: HODGKIN^S DISEASE
     Dosage: AS A PART OF MOPP/ABV REGIMEN.
     Route: 065
     Dates: start: 19951221, end: 19960215
  6. ADRIAMYCIN [Suspect]
     Active Substance: DOXORUBICIN HYDROCHLORIDE
     Indication: HODGKIN^S DISEASE
     Dosage: AS A PART OF MOPP/ABV REGIMEN.
     Route: 065
     Dates: start: 19951221, end: 19960215
  7. BLEOMYCIN [Suspect]
     Active Substance: BLEOMYCIN SULFATE
     Indication: HODGKIN^S DISEASE
     Dosage: AS A PART OF MOPP/ABV REGIMEN.
     Route: 065
     Dates: start: 19951221, end: 19960215

REACTIONS (1)
  - Synovial sarcoma [Recovered/Resolved]

NARRATIVE: CASE EVENT DATE: 2012
